FAERS Safety Report 5660164-9 (Version None)
Quarter: 2008Q1

REPORT INFORMATION
  Report Type: 
  Country: None (occurrence: None)
  Receive Date: 20080310
  Receipt Date: 20080310
  Transmission Date: 20080703
  Serious: Yes (Hospitalization)
  Sender: FDA-Public Use
  Company Number: None

PATIENT
  Age: 47 Year
  Sex: Female
  Weight: 60.3284 kg

DRUGS (2)
  1. LEVAQUIN [Suspect]
     Indication: PLEURISY
     Dosage: 1 PILL  EVERY 24 HOURS  PO
     Route: 048
     Dates: start: 20080222, end: 20080226
  2. LEVAQUIN [Suspect]
     Indication: PNEUMONIA
     Dosage: 1 PILL  EVERY 24 HOURS  PO
     Route: 048
     Dates: start: 20080222, end: 20080226

REACTIONS (8)
  - ARTHRALGIA [None]
  - CHEST PAIN [None]
  - DIZZINESS [None]
  - GAIT DISTURBANCE [None]
  - HEADACHE [None]
  - HYPOTENSION [None]
  - INSOMNIA [None]
  - MUSCLE TWITCHING [None]
